FAERS Safety Report 8556020 (Version 3)
Quarter: 2012Q4

REPORT INFORMATION
  Report Type: 
  Country: US (occurrence: US)
  Receive Date: 20120510
  Receipt Date: 20120910
  Transmission Date: 20130627
  Serious: Yes (Hospitalization, Other)
  Sender: FDA-Public Use
  Company Number: US-BAYER-2012-044449

PATIENT
  Age: 20 Year
  Sex: Female
  Weight: 62.59 kg

DRUGS (7)
  1. YASMIN [Suspect]
     Indication: DYSMENORRHOEA
     Dosage: UNK
     Dates: start: 200205, end: 20060627
  2. ZYRTEC [Concomitant]
     Indication: HYPERSENSITIVITY
     Dosage: UNK
     Dates: start: 1990
  3. ADVIL [Concomitant]
     Indication: HEADACHE
     Dosage: UNK
     Dates: end: 200606
  4. BC [Concomitant]
     Indication: HEADACHE
     Dosage: UNK
     Dates: start: 200606
  5. FLONASE [Concomitant]
     Indication: RHINITIS ALLERGIC
  6. ASTELIN [Concomitant]
     Indication: RHINITIS ALLERGIC
  7. SUDAFED [Concomitant]
     Indication: HEADACHE
     Dosage: UNK
     Dates: start: 200606

REACTIONS (10)
  - Transverse sinus thrombosis [None]
  - General physical health deterioration [None]
  - Pulmonary embolism [None]
  - Pain [None]
  - Dyspnoea [None]
  - Injury [None]
  - Mobility decreased [None]
  - Anhedonia [None]
  - Emotional distress [None]
  - Anxiety [None]
